FAERS Safety Report 11864285 (Version 2)
Quarter: 2016Q2

REPORT INFORMATION
  Report Type: Spontaneous
  Country: BR (occurrence: BR)
  Receive Date: 20151223
  Receipt Date: 20160518
  Transmission Date: 20160815
  Serious: Yes (Other)
  Sender: FDA-Public Use
  Company Number: BR-JNJFOC-20151216470

PATIENT
  Age: 44 Year
  Sex: Female

DRUGS (6)
  1. COMBIRON [Concomitant]
     Active Substance: ASCORBIC ACID\FERROUS SULFATE\FOLIC ACID\PYRIDOXINE HYDROCHLORIDE\RIBOFLAVIN\THIAMINE MONONITRATE
  2. SIMPONI [Suspect]
     Active Substance: GOLIMUMAB
     Indication: RHEUMATOID ARTHRITIS
     Route: 058
     Dates: start: 20150704
  3. METHOTREXATE [Concomitant]
     Active Substance: METHOTREXATE
     Route: 065
  4. PREDNISONE. [Concomitant]
     Active Substance: PREDNISONE
     Route: 065
  5. ADDERALL [Concomitant]
     Active Substance: AMPHETAMINE ASPARTATE\AMPHETAMINE SULFATE\DEXTROAMPHETAMINE SACCHARATE\DEXTROAMPHETAMINE SULFATE
     Route: 065
  6. LEVOID [Concomitant]
     Active Substance: LEVOTHYROXINE
     Route: 065

REACTIONS (4)
  - Leiomyoma [Unknown]
  - Malaise [Unknown]
  - Pyrexia [Unknown]
  - Pharyngitis [Unknown]

NARRATIVE: CASE EVENT DATE: 201512
